FAERS Safety Report 19162658 (Version 8)
Quarter: 2021Q2

REPORT INFORMATION
  Report Type: Report from Study
  Country: None (occurrence: ES)
  Receive Date: 20210421
  Receipt Date: 20210525
  Transmission Date: 20210717
  Serious: Yes (Hospitalization)
  Sender: FDA-Public Use
  Company Number: ES-ABBVIE-21K-144-3867303-00

PATIENT
  Age: 76 Year
  Sex: Male
  Weight: 68 kg

DRUGS (2)
  1. DUODOPA [Suspect]
     Active Substance: CARBIDOPA\LEVODOPA
     Indication: PARKINSON^S DISEASE
     Dosage: MD 12, CONTINUOUS DOSE 2.6 AND EXTRA DOSE 2.5, BLOCKING OF EXTRA DOSES OF 3 HOURS
     Route: 050
     Dates: start: 20181121
  2. DUODOPA [Suspect]
     Active Substance: CARBIDOPA\LEVODOPA

REACTIONS (9)
  - Urinary tract infection [Recovered/Resolved]
  - Constipation [Recovering/Resolving]
  - Klebsiella test positive [Unknown]
  - Urinary tract infection [Recovered/Resolved]
  - Device occlusion [Recovered/Resolved]
  - Device dislocation [Recovered/Resolved]
  - Disorientation [Recovered/Resolved]
  - Device deployment issue [Recovered/Resolved]
  - Disorientation [Recovered/Resolved]

NARRATIVE: CASE EVENT DATE: 20210329
